FAERS Safety Report 8181386-1 (Version None)
Quarter: 2012Q1

REPORT INFORMATION
  Report Type: 
  Country: None (occurrence: None)
  Receive Date: 20120302
  Receipt Date: 20120302
  Transmission Date: 20120608
  Serious: Yes (Other)
  Sender: FDA-Public Use
  Company Number: TR-BAYER-2012-020890

PATIENT
  Age: 32 Year
  Sex: Female
  Weight: 48 kg

DRUGS (3)
  1. BETASERON [Suspect]
     Dosage: 1 ML, UNK
     Route: 058
  2. IMURAN [Concomitant]
     Dosage: UNK UNK, Q4HR
  3. CIPRAM [Concomitant]
     Dosage: UNK

REACTIONS (3)
  - DIPLEGIA [None]
  - SOMNOLENCE [None]
  - ASTHENIA [None]
